FAERS Safety Report 11285331 (Version 2)
Quarter: 2015Q3

REPORT INFORMATION
  Report Type: Spontaneous
  Country: US (occurrence: US)
  Receive Date: 20150720
  Receipt Date: 20150812
  Transmission Date: 20151125
  Serious: No
  Sender: FDA-Public Use
  Company Number: US-MATRIXX INITIATIVES, INC.-1040620

PATIENT
  Age: 60 Year
  Sex: Female
  Weight: 72.73 kg

DRUGS (2)
  1. B12 SHOTS [Concomitant]
     Active Substance: CYANOCOBALAMIN
  2. ZICAM COLD REMEDY RAPIDMELTS [Suspect]
     Active Substance: ZINC ACETATE ANHYDROUS\ZINC GLUCONATE
     Indication: NASOPHARYNGITIS
     Route: 048
     Dates: start: 201504, end: 201504

REACTIONS (5)
  - Anosmia [Not Recovered/Not Resolved]
  - Fatigue [Unknown]
  - Ageusia [Not Recovered/Not Resolved]
  - Glossodynia [Unknown]
  - Nasal congestion [Unknown]

NARRATIVE: CASE EVENT DATE: 201504
